FAERS Safety Report 9443003 (Version 1)
Quarter: 2013Q3

REPORT INFORMATION
  Report Type: Spontaneous
  Country: PL (occurrence: PL)
  Receive Date: 20130806
  Receipt Date: 20130806
  Transmission Date: 20140515
  Serious: Yes (Hospitalization)
  Sender: FDA-Public Use
  Company Number: PL-ACTAVIS-2013-13627

PATIENT
  Age: 42 Year
  Sex: Female
  Weight: 92 kg

DRUGS (2)
  1. PACLITAXEL (UNKNOWN) [Suspect]
     Indication: OVARIAN CANCER
     Dosage: 350 MG, UNKNOWN
     Route: 042
     Dates: start: 20130702, end: 20130702
  2. CARBOPLATIN [Concomitant]
     Indication: OVARIAN CANCER
     Dosage: 600 MG, UNKNOWN
     Route: 065
     Dates: start: 20130702, end: 20130702

REACTIONS (3)
  - Feeling hot [Recovered/Resolved]
  - Visual field defect [Recovered/Resolved]
  - Dizziness [Recovered/Resolved]
